FAERS Safety Report 8612862-2 (Version None)
Quarter: 2012Q3

REPORT INFORMATION
  Report Type: 
  Country: None (occurrence: None)
  Receive Date: 20120822
  Receipt Date: 20110725
  Transmission Date: 20120928
  Serious: No
  Sender: FDA-Public Use
  Company Number: US-ASTRAZENECA-2011SE37477

PATIENT
  Age: 60 Year
  Sex: Female

DRUGS (24)
  1. CLARINEX [Concomitant]
     Route: 048
  2. COMPAZINE [Concomitant]
  3. CLONIDINE HYDROCHLORIDE [Concomitant]
     Route: 048
  4. PULMICORT FLEXHALER [Suspect]
     Dosage: 180 MCG/ INH, 1 INH TWICE DAILY
     Route: 055
  5. COMPAZINE [Concomitant]
  6. CYANOCOBALAMIN [Concomitant]
     Dosage: 100 MCG/ML SOLUTION 1 ML (1000 MCG) INJECTED AS DIRECTED WEEKLY
  7. LEVOTHYROXINE SODIUM [Concomitant]
     Route: 048
  8. OXYGEN [Concomitant]
     Dosage: CONTINEOUS VIA NESAL CANULA (SET AT LEVEL 2 ON AMBULATORY LANK) AS DIRECTED
  9. PHENERGAN HCL [Concomitant]
  10. COMPAZINE [Concomitant]
     Indication: NAUSEA
  11. LISINOPRIL AND HYDROCHLOROTHIAZIDE [Concomitant]
     Dosage: 12.5 MG- 20 MG DAILY
     Route: 048
  12. PREDNISONE TAB [Concomitant]
     Dosage: 20 MG TAPER DOSE
  13. DOMPERIDONE [Concomitant]
     Dosage: 20 MG 1 AC TID
  14. SYMBICORT [Suspect]
     Dosage: 4.5 MCG/INH, WITH ADAPTER 1 INHALATION ONCE DAILY
     Route: 055
  15. COMPAZINE [Concomitant]
  16. COMPAZINE [Concomitant]
  17. COMPAZINE [Concomitant]
     Indication: VOMITING
  18. LIBRAX [Concomitant]
     Dosage: 5 MG-2.5 MG BID
     Route: 048
  19. AVELOX [Concomitant]
     Route: 048
  20. COMPAZINE [Concomitant]
  21. NEXIUM [Suspect]
     Route: 048
  22. ALBUTEROL SULFATE [Concomitant]
     Dosage: HFA CFC FREE 90 MCG/ INH WITH ADAPTER 1 PUFF DAILY AS DIRECTED
  23. COMPAZINE [Concomitant]
  24. PAXIL [Concomitant]
     Route: 048

REACTIONS (2)
  - IMPAIRED GASTRIC EMPTYING [None]
  - ADVERSE EVENT [None]
